FAERS Safety Report 25631961 (Version 1)
Quarter: 2025Q3

REPORT INFORMATION
  Report Type: Spontaneous
  Country: US (occurrence: US)
  Receive Date: 20250801
  Receipt Date: 20250801
  Transmission Date: 20251021
  Serious: Yes (Life-Threatening, Hospitalization)
  Sender: MYLAN
  Company Number: US-MYLANLABS-2025M1063144

PATIENT
  Age: 43 Year
  Sex: Male

DRUGS (16)
  1. FENTANYL [Interacting]
     Active Substance: FENTANYL
     Indication: Sedative therapy
  2. FENTANYL [Interacting]
     Active Substance: FENTANYL
     Route: 065
  3. FENTANYL [Interacting]
     Active Substance: FENTANYL
     Route: 065
  4. FENTANYL [Interacting]
     Active Substance: FENTANYL
  5. BUSPIRONE [Interacting]
     Active Substance: BUSPIRONE HYDROCHLORIDE
     Indication: Anxiety
  6. BUSPIRONE [Interacting]
     Active Substance: BUSPIRONE HYDROCHLORIDE
     Route: 065
  7. BUSPIRONE [Interacting]
     Active Substance: BUSPIRONE HYDROCHLORIDE
     Route: 065
  8. BUSPIRONE [Interacting]
     Active Substance: BUSPIRONE HYDROCHLORIDE
  9. PROPOFOL [Concomitant]
     Active Substance: PROPOFOL
     Indication: Sedative therapy
  10. PROPOFOL [Concomitant]
     Active Substance: PROPOFOL
     Route: 065
  11. PROPOFOL [Concomitant]
     Active Substance: PROPOFOL
     Route: 065
  12. PROPOFOL [Concomitant]
     Active Substance: PROPOFOL
  13. PAROXETINE [Concomitant]
     Active Substance: PAROXETINE
     Indication: Depression
  14. PAROXETINE [Concomitant]
     Active Substance: PAROXETINE
     Route: 065
  15. PAROXETINE [Concomitant]
     Active Substance: PAROXETINE
     Route: 065
  16. PAROXETINE [Concomitant]
     Active Substance: PAROXETINE

REACTIONS (3)
  - Serotonin syndrome [Recovering/Resolving]
  - Drug interaction [Recovering/Resolving]
  - Off label use [Unknown]
